FAERS Safety Report 4335010-6 (Version None)
Quarter: 2004Q2

REPORT INFORMATION
  Report Type: 
  Country: None (occurrence: None)
  Receive Date: 20040408
  Receipt Date: 20040331
  Transmission Date: 20050107
  Serious: Yes (Hospitalization)
  Sender: FDA-Public Use
  Company Number: US-ROCHE-363575

PATIENT
  Age: 65 Year
  Sex: Female
  Weight: 114.3 kg

DRUGS (7)
  1. XENICAL [Suspect]
     Indication: OBESITY
     Route: 048
     Dates: end: 20030715
  2. HYZAAR [Suspect]
     Indication: HYPERTENSION
     Route: 065
  3. MECLIZINE [Suspect]
     Indication: HYPERTENSION
     Route: 065
  4. ASPIRIN [Suspect]
     Indication: PROPHYLAXIS
     Route: 065
  5. CARBIDOPA AND LEVODOPA [Suspect]
     Route: 065
  6. SYNTHROID [Suspect]
     Indication: HYPOTHYROIDISM
     Route: 065
  7. PRILOSEC [Suspect]
     Route: 065

REACTIONS (2)
  - MYOCARDIAL INFARCTION [None]
  - VASCULAR OCCLUSION [None]
